FAERS Safety Report 4501791-1 (Version None)
Quarter: 2004Q3

REPORT INFORMATION
  Report Type: 
  Country: None (occurrence: None)
  Receive Date: 20040928
  Receipt Date: 20040601
  Transmission Date: 20050211
  Serious: No
  Sender: FDA-Public Use
  Company Number: 04P-163-0262439-00

PATIENT
  Sex: Female
  Weight: 66.2252 kg

DRUGS (8)
  1. HUMIRA [Suspect]
     Indication: RHEUMATOID ARTHRITIS
     Dosage: 40 MG, 1 IN 2 WK, SUBCUTANEOUS
     Route: 058
     Dates: start: 20030301
  2. METHOTREXATE [Concomitant]
  3. RABEPRAZOLE SODIUM [Concomitant]
  4. PROPACET 100 [Concomitant]
  5. VICODIN [Concomitant]
  6. ATENOLOL [Concomitant]
  7. FOLIC ACID [Concomitant]
  8. MULTIVIAMINS [Concomitant]

REACTIONS (3)
  - INJECTION SITE ERYTHEMA [None]
  - INJECTION SITE PAIN [None]
  - INJECTION SITE URTICARIA [None]
